FAERS Safety Report 11007928 (Version 1)
Quarter: 2015Q2

REPORT INFORMATION
  Report Type: Spontaneous
  Country: US (occurrence: US)
  Receive Date: 20150409
  Receipt Date: 20150409
  Transmission Date: 20150821
  Serious: Yes (Hospitalization)
  Sender: FDA-Public Use
  Company Number: US-ENDO PHARMACEUTICALS INC.-2015-000277

PATIENT
  Age: 59 Year
  Sex: Female

DRUGS (3)
  1. ALLOPURINOL TABLETS [Suspect]
     Active Substance: ALLOPURINOL
     Indication: GOUT
     Route: 048
     Dates: start: 20140930, end: 20141126
  2. GABAPENTIN. [Concomitant]
     Active Substance: GABAPENTIN
     Indication: DIABETIC NEUROPATHY
     Route: 065
  3. LEXAPRO [Concomitant]
     Active Substance: ESCITALOPRAM OXALATE
     Indication: ANXIETY
     Route: 048

REACTIONS (8)
  - Liver disorder [Unknown]
  - Renal failure [Recovered/Resolved]
  - Migraine [Unknown]
  - Abdominal discomfort [Unknown]
  - Drug hypersensitivity [Recovered/Resolved]
  - Neck pain [Unknown]
  - Somnolence [Unknown]
  - Feeling hot [Unknown]

NARRATIVE: CASE EVENT DATE: 2014
